FAERS Safety Report 4771790-3 (Version None)
Quarter: 2005Q3

REPORT INFORMATION
  Report Type: 
  Country: None (occurrence: None)
  Receive Date: 20050916
  Receipt Date: 20050818
  Transmission Date: 20060218
  Serious: Yes (Death)
  Sender: FDA-Public Use
  Company Number: FR-SANOFI-SYNTHELABO-F01200501598

PATIENT
  Sex: Male

DRUGS (4)
  1. OXALIPLATIN [Suspect]
     Indication: OESOPHAGEAL CARCINOMA
     Route: 042
     Dates: start: 20050803, end: 20050803
  2. FLUOROURACIL [Suspect]
     Route: 042
     Dates: start: 20050803, end: 20050804
  3. LEUCOVORIN [Suspect]
     Route: 042
     Dates: start: 20050803, end: 20050804
  4. RADIOTHERAPY [Concomitant]
     Indication: OESOPHAGEAL CARCINOMA
     Dosage: TOTAL DOSE OF FRACTION ADMINISTERED BEFORE SAE: 48
     Route: 050
     Dates: start: 20050713, end: 20050713

REACTIONS (9)
  - ABDOMINAL PAIN [None]
  - CONSTIPATION [None]
  - DEATH [None]
  - GENERAL PHYSICAL HEALTH DETERIORATION [None]
  - HEPATIC STEATOSIS [None]
  - LUNG DISORDER [None]
  - OEDEMA PERIPHERAL [None]
  - PERITONEAL CARCINOMA [None]
  - TUBERCULOSIS [None]
